FAERS Safety Report 7597914-0 (Version None)
Quarter: 2011Q3

REPORT INFORMATION
  Report Type: 
  Country: None (occurrence: None)
  Receive Date: 20110708
  Receipt Date: 20110628
  Transmission Date: 20111222
  Serious: Yes (Hospitalization, Other)
  Sender: FDA-Public Use
  Company Number: NZ-ABBOTT-11P-118-0732123-00

PATIENT
  Sex: Female
  Weight: 59 kg

DRUGS (9)
  1. CREON [Suspect]
     Indication: PANCREATITIS ACUTE
  2. OXYCODONE HCL [Concomitant]
     Indication: PRODUCT USED FOR UNKNOWN INDICATION
     Dosage: 10MG EVERY 2-4 HOURS AS NEEDED
  3. CARAFATE [Concomitant]
     Indication: ABDOMINAL DISCOMFORT
  4. LEVLEN 28 [Concomitant]
     Indication: PRODUCT USED FOR UNKNOWN INDICATION
  5. AMITRIPTYLINE HCL [Concomitant]
     Indication: PRODUCT USED FOR UNKNOWN INDICATION
  6. CARAFATE [Concomitant]
     Indication: PROPHYLAXIS
  7. CREON [Suspect]
     Indication: DYSPEPSIA
  8. PARADEX [Concomitant]
     Indication: PRODUCT USED FOR UNKNOWN INDICATION
  9. CREON [Suspect]
     Indication: PANCREATITIS CHRONIC
     Dosage: 10,000 1-2 CAPSULES PER MEAL
     Dates: start: 20080101

REACTIONS (17)
  - GASTRIC ULCER [None]
  - VISCERAL PAIN [None]
  - ABDOMINAL DISTENSION [None]
  - CHOLESTASIS [None]
  - PAIN [None]
  - GASTROINTESTINAL DISORDER [None]
  - SPHINCTER OF ODDI DYSFUNCTION [None]
  - REFLUX GASTRITIS [None]
  - ABDOMINAL PAIN UPPER [None]
  - VOMITING [None]
  - ABDOMINAL PAIN [None]
  - BLOOD AMYLASE INCREASED [None]
  - GASTRITIS [None]
  - NAUSEA [None]
  - PANCREATIC DUCT STENOSIS [None]
  - DIARRHOEA [None]
  - ABNORMAL FAECES [None]
